FAERS Safety Report 7715100-8 (Version None)
Quarter: 2011Q3

REPORT INFORMATION
  Report Type: 
  Country: None (occurrence: None)
  Receive Date: 20110829
  Receipt Date: 20110818
  Transmission Date: 20111222
  Serious: Yes (Hospitalization, Other)
  Sender: FDA-Public Use
  Company Number: PHEH2008US09008

PATIENT
  Sex: Male

DRUGS (31)
  1. ZOMETA [Suspect]
     Indication: PROSTATE CANCER METASTATIC
     Dates: start: 20050101
  2. SIMAVASTATIN [Concomitant]
  3. AZITHROMYCIN [Concomitant]
  4. FRAGMIN [Concomitant]
  5. VITAMIN B-12 [Concomitant]
  6. XANAX [Concomitant]
     Dosage: 2 MG, QD
  7. COLACE [Concomitant]
  8. AUGMENTIN '125' [Concomitant]
  9. TYLENOL-500 [Concomitant]
  10. PHENERGAN HCL [Concomitant]
  11. FERROUS SULFATE TAB [Concomitant]
  12. PREDNISONE [Concomitant]
  13. PROCRIT [Concomitant]
  14. ALBUTEROL SULFATE AUTOHALER [Concomitant]
  15. MUCINEX [Concomitant]
  16. MITOXANTRONE [Concomitant]
  17. RADIATION THERAPY [Concomitant]
  18. RITUXAN [Concomitant]
  19. VINCRISTINE [Concomitant]
  20. FOLIC ACID [Concomitant]
  21. ZOSYN [Concomitant]
  22. ASPIRIN [Concomitant]
  23. SENOKOT [Concomitant]
  24. CYTOXAN [Concomitant]
  25. ALPRAZOLAM [Concomitant]
  26. REGLAN [Concomitant]
  27. PRAVACHOL [Concomitant]
  28. ENSURE PLUS [Concomitant]
  29. LASIX [Concomitant]
  30. HUMIBID [Concomitant]
  31. MARINOL [Concomitant]

REACTIONS (65)
  - DISCOMFORT [None]
  - METASTASES TO PANCREAS [None]
  - NEUROPATHY PERIPHERAL [None]
  - PNEUMONIA [None]
  - SINUS TACHYCARDIA [None]
  - BUNDLE BRANCH BLOCK RIGHT [None]
  - HYPOGAMMAGLOBULINAEMIA [None]
  - URINARY RETENTION [None]
  - ASTHENIA [None]
  - OSTEITIS [None]
  - BACK PAIN [None]
  - DUODENAL ULCER [None]
  - NAUSEA [None]
  - HYPOTENSION [None]
  - ABDOMINAL DISTENSION [None]
  - NEOPLASM PROGRESSION [None]
  - SYNCOPE [None]
  - CHEST PAIN [None]
  - OEDEMA [None]
  - DEHYDRATION [None]
  - PAIN [None]
  - BONE DISORDER [None]
  - DEFORMITY [None]
  - ANXIETY [None]
  - BLOOD IMMUNOGLOBULIN G DECREASED [None]
  - EJECTION FRACTION DECREASED [None]
  - BUNDLE BRANCH BLOCK LEFT [None]
  - CELLULITIS [None]
  - PRURITUS [None]
  - GASTROOESOPHAGEAL REFLUX DISEASE [None]
  - NEOPLASM MALIGNANT [None]
  - SPINAL OSTEOARTHRITIS [None]
  - HYPOXIA [None]
  - OEDEMA PERIPHERAL [None]
  - FALL [None]
  - CARDIAC FAILURE CONGESTIVE [None]
  - ATRIOVENTRICULAR BLOCK FIRST DEGREE [None]
  - HAEMATOCHEZIA [None]
  - MENTAL STATUS CHANGES [None]
  - ACUTE RESPIRATORY FAILURE [None]
  - DIZZINESS [None]
  - ARTHRITIS [None]
  - PAIN IN EXTREMITY [None]
  - NON-HODGKIN'S LYMPHOMA [None]
  - METASTASES TO LIVER [None]
  - GINGIVAL ABSCESS [None]
  - RENAL FAILURE CHRONIC [None]
  - CHRONIC OBSTRUCTIVE PULMONARY DISEASE [None]
  - AORTIC DILATATION [None]
  - BREATH SOUNDS ABNORMAL [None]
  - VOMITING [None]
  - OSTEONECROSIS OF JAW [None]
  - EMOTIONAL DISTRESS [None]
  - METASTASES TO BONE [None]
  - DYSPNOEA [None]
  - PYREXIA [None]
  - BIFASCICULAR BLOCK [None]
  - METASTASES TO SPLEEN [None]
  - SPINAL COMPRESSION FRACTURE [None]
  - RENAL CYST [None]
  - COUGH [None]
  - RHINORRHOEA [None]
  - PLEURISY [None]
  - THROMBOCYTOPENIA [None]
  - CONSTIPATION [None]
